FAERS Safety Report 6900755-8 (Version None)
Quarter: 2010Q3

REPORT INFORMATION
  Report Type: 
  Country: None (occurrence: None)
  Receive Date: 20100803
  Receipt Date: 20100719
  Transmission Date: 20110219
  Serious: Yes (Hospitalization, Other)
  Sender: FDA-Public Use
  Company Number: GR-CUBIST-2010S1000911

PATIENT
  Age: 28 Year
  Sex: Male
  Weight: 92 kg

DRUGS (3)
  1. CUBICIN [Suspect]
     Indication: SOFT TISSUE INFECTION
     Route: 042
     Dates: start: 20100619, end: 20100703
  2. TAZOCIN [Concomitant]
     Indication: PRODUCT USED FOR UNKNOWN INDICATION
     Dates: start: 20100619, end: 20100703
  3. COLISTIN [Concomitant]
     Indication: PRODUCT USED FOR UNKNOWN INDICATION
     Dates: start: 20100630, end: 20100703

REACTIONS (2)
  - ACUTE LUNG INJURY [None]
  - HYPERSENSITIVITY [None]
